FAERS Safety Report 9439358 (Version 1)
Quarter: 2013Q3

REPORT INFORMATION
  Report Type: Report from Study
  Country: AR (occurrence: AR)
  Receive Date: 20130805
  Receipt Date: 20130805
  Transmission Date: 20140515
  Serious: Yes (Hospitalization)
  Sender: FDA-Public Use
  Company Number: AR-ROCHE-1256776

PATIENT
  Age: 58 Year
  Sex: Female

DRUGS (1)
  1. ACTEMRA [Suspect]
     Indication: RHEUMATOID ARTHRITIS
     Route: 042
     Dates: start: 20121112, end: 20130715

REACTIONS (3)
  - White blood cell count decreased [Not Recovered/Not Resolved]
  - Electrolyte imbalance [Recovered/Resolved]
  - Herpes virus infection [Recovered/Resolved]
